FAERS Safety Report 16530676 (Version 1)
Quarter: 2019Q3

REPORT INFORMATION
  Report Type: Spontaneous
  Country: SE (occurrence: SE)
  Receive Date: 20190704
  Receipt Date: 20190704
  Transmission Date: 20191004
  Serious: Yes (Hospitalization)
  Sender: FDA-Public Use
  Company Number: SE-TEVA-2019-SE-1072598

PATIENT
  Age: 19 Year
  Sex: Female

DRUGS (4)
  1. ANAFRANIL [Suspect]
     Active Substance: CLOMIPRAMINE HYDROCHLORIDE
     Route: 048
     Dates: start: 20190205, end: 20190205
  2. LERGIGAN (PROMETHAZINE HYDROCHLORIDE) [Suspect]
     Active Substance: PROMETHAZINE HYDROCHLORIDE
     Route: 048
     Dates: start: 20190205, end: 20190205
  3. ZYPREXA [Suspect]
     Active Substance: OLANZAPINE
     Dates: start: 20190205, end: 20190205
  4. BUSPIRONE [Suspect]
     Active Substance: BUSPIRONE HYDROCHLORIDE
     Route: 048
     Dates: start: 20190205, end: 20190205

REACTIONS (5)
  - Intentional overdose [Unknown]
  - Miosis [Unknown]
  - Tachycardia [Unknown]
  - Akathisia [Unknown]
  - Intentional self-injury [Unknown]

NARRATIVE: CASE EVENT DATE: 20190205
